FAERS Safety Report 5906393-8 (Version None)
Quarter: 2008Q4

REPORT INFORMATION
  Report Type: 
  Country: None (occurrence: None)
  Receive Date: 20081002
  Receipt Date: 20080929
  Transmission Date: 20090506
  Serious: Yes (Hospitalization)
  Sender: FDA-Public Use
  Company Number: FR-WYE-G02252408

PATIENT
  Sex: Female

DRUGS (5)
  1. ADVIL [Suspect]
     Indication: DYSMENORRHOEA
     Dosage: UNKNOWN
     Route: 048
     Dates: start: 20080824, end: 20080801
  2. LAMICTAL [Suspect]
     Indication: CEREBRAL VENOUS THROMBOSIS
     Route: 048
     Dates: start: 20080501
  3. SPASFON [Concomitant]
     Indication: DYSMENORRHOEA
     Dosage: UNKNOWN
     Route: 048
     Dates: start: 20080824
  4. COUMADIN [Suspect]
     Indication: CEREBRAL VENOUS THROMBOSIS
     Dosage: 5 MG TOTAL DAILY
     Route: 048
     Dates: start: 20080812, end: 20080820
  5. COUMADIN [Suspect]
     Dosage: 2.5 MG DAILY ALTERNATING WITH 5 MG DAILY
     Route: 048
     Dates: start: 20080821, end: 20080825

REACTIONS (3)
  - GINGIVAL BLEEDING [None]
  - INTERNATIONAL NORMALISED RATIO INCREASED [None]
  - MEDICATION ERROR [None]
